FAERS Safety Report 12969164 (Version 2)
Quarter: 2016Q4

REPORT INFORMATION
  Report Type: Spontaneous
  Country: US (occurrence: US)
  Receive Date: 20161123
  Receipt Date: 20161207
  Transmission Date: 20170207
  Serious: Yes (Hospitalization)
  Sender: FDA-Public Use
  Company Number: US-MISSION PHARMACAL COMPANY-1060001

PATIENT
  Age: 26 Year
  Sex: Female

DRUGS (1)
  1. THIOLA [Suspect]
     Active Substance: TIOPRONIN
     Indication: CALCULUS URINARY
     Route: 065
     Dates: start: 20150810

REACTIONS (4)
  - Drug dose omission [Unknown]
  - Pneumothorax [Unknown]
  - Drug ineffective [Unknown]
  - Acute pulmonary oedema [Unknown]
